FAERS Safety Report 8779507 (Version 2)
Quarter: 2012Q4

REPORT INFORMATION
  Report Type: Report from Study
  Country: NL (occurrence: NL)
  Receive Date: 20120912
  Receipt Date: 20121011
  Transmission Date: 20130627
  Serious: Yes (Hospitalization)
  Sender: FDA-Public Use
  Company Number: NL-ROCHE-1109621

PATIENT
  Age: 59 Year
  Sex: Female

DRUGS (4)
  1. HERCEPTIN [Suspect]
     Indication: BREAST CANCER METASTATIC
     Dosage: last dose prior to  AE: 18/Jul/2012
     Route: 042
     Dates: start: 20120222
  2. AVASTIN [Suspect]
     Indication: BREAST CANCER METASTATIC
     Dosage: last dose prior to  AE: 18/Jul/2012
     Route: 042
     Dates: start: 20120223
  3. PACLITAXEL [Suspect]
     Indication: BREAST CANCER METASTATIC
     Dosage: last dose prior to  AE: 11/Jul/2012
     Route: 042
     Dates: start: 20120223
  4. TRIAMTERENE/HCTZ [Concomitant]
     Route: 065
     Dates: end: 20120813

REACTIONS (2)
  - Dehydration [Recovered/Resolved with Sequelae]
  - Ileus [Recovered/Resolved]
